FAERS Safety Report 12263193 (Version 1)
Quarter: 2016Q2

REPORT INFORMATION
  Report Type: Spontaneous
  Country: PT (occurrence: PT)
  Receive Date: 20160413
  Receipt Date: 20160413
  Transmission Date: 20160815
  Serious: Yes (Life-Threatening, Hospitalization, Other)
  Sender: FDA-Public Use
  Company Number: PT-GILEAD-2016-0208392

PATIENT
  Age: 34 Year
  Sex: Male

DRUGS (4)
  1. HARVONI [Suspect]
     Active Substance: LEDIPASVIR\SOFOSBUVIR
     Indication: HEPATITIS C
     Route: 048
     Dates: start: 20160315, end: 20160328
  2. RITONAVIR. [Concomitant]
     Active Substance: RITONAVIR
     Indication: HIV INFECTION
     Route: 048
  3. ATAZANAVIR [Concomitant]
     Active Substance: ATAZANAVIR
     Indication: HIV INFECTION
     Route: 048
  4. TRUVADA [Concomitant]
     Active Substance: EMTRICITABINE\TENOFOVIR DISOPROXIL FUMARATE
     Route: 048

REACTIONS (1)
  - Pulmonary alveolar haemorrhage [Recovering/Resolving]

NARRATIVE: CASE EVENT DATE: 20160326
